FAERS Safety Report 5149079-2 (Version None)
Quarter: 2006Q4

REPORT INFORMATION
  Report Type: 
  Country: None (occurrence: None)
  Receive Date: 20061113
  Receipt Date: 20061030
  Transmission Date: 20070319
  Serious: Yes (Other)
  Sender: FDA-Public Use
  Company Number: PT-MERCK-0610PRT00010

PATIENT
  Age: 7 Year
  Sex: Female

DRUGS (2)
  1. MONTELUKAST SODIUM [Suspect]
     Indication: ASTHMA
     Route: 048
     Dates: start: 20060101, end: 20060101
  2. CORTICOSTEROIDS (UNSPECIFIED) [Concomitant]
     Indication: ASTHMA

REACTIONS (4)
  - DIPLOPIA [None]
  - EYE DISORDER [None]
  - HEADACHE [None]
  - INTRACRANIAL PRESSURE INCREASED [None]
